FAERS Safety Report 10147164 (Version 1)
Quarter: 2014Q2

REPORT INFORMATION
  Report Type: Spontaneous
  Country: US (occurrence: US)
  Receive Date: 20140501
  Receipt Date: 20140501
  Transmission Date: 20141212
  Serious: No
  Sender: FDA-Public Use
  Company Number: US-009507513-1404USA012410

PATIENT
  Age: 75 Year
  Sex: Male

DRUGS (3)
  1. JANUMET XR [Suspect]
     Indication: DIABETES MELLITUS
     Dosage: 50/1000 MG, UNK
     Route: 048
     Dates: start: 20140417
  2. LISINOPRIL [Concomitant]
     Route: 065
  3. ATORVASTATIN [Concomitant]
     Route: 065

REACTIONS (4)
  - Dyspnoea [Unknown]
  - Lethargy [Unknown]
  - Decreased appetite [Unknown]
  - Skin odour abnormal [Unknown]
